FAERS Safety Report 19846069 (Version 4)
Quarter: 2021Q4

REPORT INFORMATION
  Report Type: Spontaneous
  Country: US (occurrence: US)
  Receive Date: 20210917
  Receipt Date: 20211026
  Transmission Date: 20220303
  Serious: No
  Sender: FDA-Public Use
  Company Number: US-BEH-2021135976

PATIENT
  Age: 32 Year
  Sex: Female

DRUGS (3)
  1. HIZENTRA [Suspect]
     Active Substance: HUMAN IMMUNOGLOBULIN G
     Indication: Chronic inflammatory demyelinating polyradiculoneuropathy
     Dosage: 20 GRAM, QW
     Route: 058
     Dates: start: 20190814
  2. HIZENTRA [Suspect]
     Active Substance: HUMAN IMMUNOGLOBULIN G
     Indication: Menstruation irregular
     Dosage: 20 GRAM, QW
     Route: 058
     Dates: start: 20210401
  3. HIZENTRA [Suspect]
     Active Substance: HUMAN IMMUNOGLOBULIN G
     Dosage: 20 GRAM, TOT
     Route: 058
     Dates: start: 20210826, end: 20210826

REACTIONS (10)
  - Infusion site pain [Unknown]
  - Infusion site swelling [Unknown]
  - Tenderness [Unknown]
  - Muscle spasms [Unknown]
  - Ill-defined disorder [Unknown]
  - No adverse event [Unknown]
  - Off label use [Unknown]
  - Infusion site pruritus [Unknown]
  - Infusion site erythema [Unknown]
  - Injection site mass [Unknown]

NARRATIVE: CASE EVENT DATE: 20210826
